FAERS Safety Report 4961636-2 (Version None)
Quarter: 2006Q1

REPORT INFORMATION
  Report Type: 
  Country: None (occurrence: None)
  Receive Date: 20060329
  Receipt Date: 20060316
  Transmission Date: 20060701
  Serious: Yes (Congenital Anomaly, Other)
  Sender: FDA-Public Use
  Company Number: 2006RR-01804

PATIENT
  Sex: Female
  Weight: 3.8 kg

DRUGS (2)
  1. FLUOXETINE [Suspect]
     Dosage: TRANSPLACENTAL
     Route: 064
  2. MICROGYNON [Concomitant]

REACTIONS (4)
  - ATRIAL SEPTAL DEFECT [None]
  - DRUG EXPOSURE DURING PREGNANCY [None]
  - PATENT DUCTUS ARTERIOSUS [None]
  - URINARY TRACT INFECTION [None]
